FAERS Safety Report 4952693-8 (Version None)
Quarter: 2006Q1

REPORT INFORMATION
  Report Type: 
  Country: None (occurrence: None)
  Receive Date: 20060321
  Receipt Date: 20060306
  Transmission Date: 20060701
  Serious: Yes (Hospitalization, Other)
  Sender: FDA-Public Use
  Company Number: 2006-DE-01228GD

PATIENT
  Age: 69 Year
  Sex: Female

DRUGS (6)
  1. ACETAMINOPHEN [Suspect]
     Indication: PAIN IN EXTREMITY
  2. AMITRIPTYLINE (AMITRIPTYLINE) [Suspect]
     Indication: PAIN IN EXTREMITY
  3. LIDOCAINE [Suspect]
     Indication: PAIN IN EXTREMITY
     Dosage: BRIEF INFUSION
  4. MORPHINE [Suspect]
     Indication: PAIN IN EXTREMITY
     Dosage: 9 MG, INTERMITTENT ADMINISTRATION OF MORPHINE AND PHENTOLAMINE), IV
     Route: 042
  5. OXYCODONE (OXYCODONE) [Suspect]
     Indication: PAIN IN EXTREMITY
  6. PHENTOLAMINE (PHENTOLAMINE) [Suspect]
     Indication: PAIN IN EXTREMITY
     Dosage: 15 MG, INTERMITTENT ADMINISTRATION OF MORPHINE AND PHENTOLAMINE), IV
     Route: 042

REACTIONS (11)
  - ATROPHY [None]
  - BLADDER DISORDER [None]
  - CONDITION AGGRAVATED [None]
  - DRUG INEFFECTIVE [None]
  - INTESTINAL FUNCTIONAL DISORDER [None]
  - PAIN IN EXTREMITY [None]
  - PARAESTHESIA [None]
  - PARAPLEGIA [None]
  - SOMNOLENCE [None]
  - SPINAL CORD DISORDER [None]
  - THERAPY NON-RESPONDER [None]
